FAERS Safety Report 24774019 (Version 2)
Quarter: 2024Q4

REPORT INFORMATION
  Report Type: Spontaneous
  Country: US (occurrence: US)
  Receive Date: 20241225
  Receipt Date: 20241231
  Transmission Date: 20250115
  Serious: No
  Sender: SANOFI AVENTIS
  Company Number: US-SA-2024SA378145

PATIENT
  Age: 69 Year
  Sex: Male

DRUGS (1)
  1. LANTUS SOLOSTAR [Suspect]
     Active Substance: INSULIN GLARGINE
     Indication: Type 2 diabetes mellitus
     Dosage: HE TAKES BETWEEN 17 AND 20 UNITS DEPENDING ON HIS BLOOD SUGAR, TWICE DAILY

REACTIONS (1)
  - Off label use [Unknown]
